FAERS Safety Report 9145531 (Version 1)
Quarter: 2013Q1

REPORT INFORMATION
  Report Type: Spontaneous
  Country: US (occurrence: None)
  Receive Date: 20130207
  Receipt Date: 20130207
  Transmission Date: 20140127
  Serious: Yes (Death)
  Sender: FDA-Public Use
  Company Number: SYN-0417-2013

PATIENT
  Age: 55 Year
  Sex: Male

DRUGS (9)
  1. TAMSULOSIN CAPSULES [Suspect]
     Indication: PRODUCT USED FOR UNKNOWN INDICATION
  2. AMYTRIPTYLINE [Concomitant]
  3. MODAFINIL [Concomitant]
  4. GABAPENTIN [Concomitant]
  5. TIZANIDIN [Concomitant]
  6. ETHANOL [Concomitant]
  7. CLONAZEPAM [Concomitant]
  8. NATALIZUMAB [Concomitant]
  9. ATORVASTATIN [Concomitant]

REACTIONS (1)
  - Completed suicide [None]
